FAERS Safety Report 7511338-3 (Version None)
Quarter: 2011Q2

REPORT INFORMATION
  Report Type: 
  Country: None (occurrence: None)
  Receive Date: 20110531
  Receipt Date: 20101227
  Transmission Date: 20111010
  Serious: Yes (Other)
  Sender: FDA-Public Use
  Company Number: US-BAYER-201012523NA

PATIENT
  Age: 40 Year
  Sex: Female
  Weight: 57 kg

DRUGS (5)
  1. YASMIN [Suspect]
     Dosage: 1 DF (DAILY DOSE), QD, ORAL
     Route: 048
  2. AZITHROMYCIN [Concomitant]
  3. YAZ [Suspect]
     Indication: PREMENSTRUAL SYNDROME
  4. PROMETHAZINE [Concomitant]
  5. YAZ [Suspect]
     Indication: MENORRHAGIA
     Dosage: UNK
     Dates: start: 20071106, end: 20080415

REACTIONS (15)
  - HEADACHE [None]
  - CEREBROVASCULAR ACCIDENT [None]
  - ANXIETY [None]
  - PULMONARY EMBOLISM [None]
  - FEAR [None]
  - SPEECH DISORDER [None]
  - MOTOR DYSFUNCTION [None]
  - PANIC ATTACK [None]
  - HYPOAESTHESIA [None]
  - CONFUSIONAL STATE [None]
  - MEMORY IMPAIRMENT [None]
  - PAIN [None]
  - APHASIA [None]
  - DEEP VEIN THROMBOSIS [None]
  - HEMIPARESIS [None]
